FAERS Safety Report 21643943 (Version 1)
Quarter: 2022Q4

REPORT INFORMATION
  Report Type: Spontaneous
  Country: CN (occurrence: CN)
  Receive Date: 20221125
  Receipt Date: 20221125
  Transmission Date: 20230112
  Serious: Yes (Life-Threatening)
  Sender: FDA-Public Use
  Company Number: CN-TAKEDA-2022TUS089039

PATIENT
  Age: 78 Year
  Sex: Male

DRUGS (1)
  1. PIOGLITAZONE [Suspect]
     Active Substance: PIOGLITAZONE
     Indication: Diabetes mellitus
     Dosage: 15 MILLIGRAM, QD
     Route: 048
     Dates: start: 20221103, end: 20221117

REACTIONS (1)
  - Troponin increased [Recovering/Resolving]

NARRATIVE: CASE EVENT DATE: 20221118
